FAERS Safety Report 6249091-6 (Version None)
Quarter: 2009Q2

REPORT INFORMATION
  Report Type: 
  Country: None (occurrence: None)
  Receive Date: 20090624
  Receipt Date: 20090624
  Transmission Date: 20091009
  Serious: No
  Sender: FDA-Public Use
  Company Number: None

PATIENT
  Sex: Male
  Weight: 117.9352 kg

DRUGS (11)
  1. CARVEDILOL [Suspect]
     Dosage: 1 TABLET TWICE A DAY PO
     Route: 048
     Dates: start: 20090616, end: 20090623
  2. INSULIN [Concomitant]
  3. HUMALOG [Concomitant]
  4. HUMULIN R [Concomitant]
  5. ZETIA [Concomitant]
  6. LIPITOR [Concomitant]
  7. CILOSTAZOL [Concomitant]
  8. DOXAZOSIN MESYLATE [Concomitant]
  9. MOEXIPHR/HCTZ [Concomitant]
  10. LEVOTHYROXINE SODIUM [Concomitant]
  11. ASPIRIN [Concomitant]

REACTIONS (2)
  - PRURITUS GENERALISED [None]
  - SCRATCH [None]
